FAERS Safety Report 5144731-7 (Version None)
Quarter: 2006Q4

REPORT INFORMATION
  Report Type: 
  Country: None (occurrence: None)
  Receive Date: 20061106
  Receipt Date: 20060904
  Transmission Date: 20070319
  Serious: Yes (Other)
  Sender: FDA-Public Use
  Company Number: IE-ELI_LILLY_AND_COMPANY-IE200609000438

PATIENT
  Age: 30 Year
  Sex: Female

DRUGS (1)
  1. YENTREVE [Suspect]
     Dosage: 20 MG, UNK
     Dates: start: 20060811, end: 20060811

REACTIONS (4)
  - DISORIENTATION [None]
  - FEELING DRUNK [None]
  - NAUSEA [None]
  - TREMOR [None]
